FAERS Safety Report 12118447 (Version 1)
Quarter: 2016Q1

REPORT INFORMATION
  Report Type: Spontaneous
  Country: US (occurrence: None)
  Receive Date: 20160222
  Receipt Date: 20160222
  Transmission Date: 20160526
  Serious: Yes (Other)
  Sender: FDA-Public Use
  Company Number: MER-2016-000003

PATIENT
  Sex: Female

DRUGS (4)
  1. ALOXI (PALONOSETRON HYDROCHLORIDE) [Concomitant]
  2. ATROPINE. [Concomitant]
     Active Substance: ATROPINE
  3. DECADRON [Concomitant]
     Active Substance: DEXAMETHASONE
  4. ONIVYDE [Suspect]
     Active Substance: IRINOTECAN HYDROCHLORIDE
     Route: 042
     Dates: start: 20160118, end: 20160118

REACTIONS (4)
  - Dyspnoea [None]
  - Back pain [None]
  - Erythema [None]
  - Hypersensitivity [None]

NARRATIVE: CASE EVENT DATE: 20160118
